FAERS Safety Report 16804921 (Version 1)
Quarter: 2019Q3

REPORT INFORMATION
  Report Type: Spontaneous
  Country: US (occurrence: US)
  Receive Date: 20190913
  Receipt Date: 20190913
  Transmission Date: 20191005
  Serious: No
  Sender: FDA-Public Use
  Company Number: US-BAYER-2019-168027

PATIENT
  Age: 58 Year
  Sex: Female

DRUGS (3)
  1. CLARITIN [Suspect]
     Active Substance: LORATADINE
     Indication: SINUSITIS
     Dosage: UNK MG
     Dates: start: 2018
  2. ENTYVIO [Concomitant]
     Active Substance: VEDOLIZUMAB
     Dosage: 300 MG
     Dates: start: 2018
  3. SULFASALAZINE. [Concomitant]
     Active Substance: SULFASALAZINE
     Dosage: 900 MG, QD

REACTIONS (8)
  - Back pain [None]
  - Arthralgia [None]
  - Therapeutic reaction time decreased [None]
  - Sinusitis [None]
  - Off label use [None]
  - Road traffic accident [None]
  - Weight increased [None]
  - Somnolence [None]

NARRATIVE: CASE EVENT DATE: 2018
